FAERS Safety Report 5011233-8 (Version None)
Quarter: 2006Q2

REPORT INFORMATION
  Report Type: 
  Country: None (occurrence: None)
  Receive Date: 20060523
  Receipt Date: 20060523
  Transmission Date: 20061013
  Serious: Yes (Hospitalization)
  Sender: FDA-Public Use
  Company Number: None

PATIENT
  Age: 68 Year
  Sex: Female

DRUGS (2)
  1. COUMADIN [Suspect]
     Indication: ATRIAL FIBRILLATION
     Dosage: 4 MG PO DAILY
     Route: 048
  2. NAPROSYN [Suspect]
     Indication: ARTHRITIS
     Dosage: 500 PO BID
     Route: 048

REACTIONS (7)
  - ABDOMINAL PAIN [None]
  - ASTHENIA [None]
  - DIVERTICULUM [None]
  - DIZZINESS [None]
  - GASTRITIS EROSIVE [None]
  - GASTROINTESTINAL HAEMORRHAGE [None]
  - INTERNATIONAL NORMALISED RATIO INCREASED [None]
